FAERS Safety Report 7778103-3 (Version None)
Quarter: 2011Q3

REPORT INFORMATION
  Report Type: 
  Country: None (occurrence: None)
  Receive Date: 20110926
  Receipt Date: 20110920
  Transmission Date: 20111222
  Serious: Yes (Hospitalization)
  Sender: FDA-Public Use
  Company Number: US-BAYER-2011-088162

PATIENT
  Sex: Female

DRUGS (2)
  1. MOXIFLOXACIN [Suspect]
     Indication: INFECTION
  2. MOXIFLOXACIN [Suspect]
     Indication: FEBRILE NEUTROPENIA
     Dosage: 400 MG, QD

REACTIONS (3)
  - TREATMENT FAILURE [None]
  - PYREXIA [None]
  - ABDOMINAL PAIN [None]
